FAERS Safety Report 9945286 (Version 1)
Quarter: 2014Q1

REPORT INFORMATION
  Report Type: Report from Study
  Country: US (occurrence: US)
  Receive Date: 20140303
  Receipt Date: 20140303
  Transmission Date: 20141002
  Serious: No
  Sender: FDA-Public Use
  Company Number: US-ABBVIE-13P-163-1049377-00

PATIENT
  Age: 61 Year
  Sex: Female

DRUGS (5)
  1. HUMIRA [Suspect]
     Indication: PSORIASIS
     Dates: start: 20120915, end: 20121230
  2. SYNTHROID [Concomitant]
     Indication: HYPOTHYROIDISM
     Dosage: 100 MCG DAILY
  3. BENADRYL [Concomitant]
     Indication: PRURITUS
  4. TRIAMCINOLONE [Concomitant]
     Indication: PRURITUS
     Dosage: ON PSORIASIS PATCHES AS NEEDED FOR ITCHING
     Route: 061
  5. ATENOLOL [Concomitant]
     Indication: HYPERTENSION
     Dates: end: 201212

REACTIONS (2)
  - Blood pressure increased [Not Recovered/Not Resolved]
  - Drug ineffective [Not Recovered/Not Resolved]
